FAERS Safety Report 12581459 (Version 4)
Quarter: 2016Q3

REPORT INFORMATION
  Report Type: Report from Study
  Country: US (occurrence: US)
  Receive Date: 20160721
  Receipt Date: 20160907
  Transmission Date: 20161109
  Serious: No
  Sender: FDA-Public Use
  Company Number: US-TAKEDA-2016TUS012087

PATIENT
  Sex: Female
  Weight: 69.84 kg

DRUGS (6)
  1. BENADRYL [Concomitant]
     Active Substance: DIPHENHYDRAMINE HYDROCHLORIDE
     Indication: PREMEDICATION
     Dosage: UNK
  2. ARMOUR THYROID [Concomitant]
     Active Substance: THYROID, PORCINE
     Indication: THYROID DISORDER
     Dosage: UNK, QD
     Route: 048
  3. SODIUM BICARBONATE. [Concomitant]
     Active Substance: SODIUM BICARBONATE
     Indication: RENAL DISORDER
     Dosage: UNK, QD
     Route: 048
  4. LUVOX [Concomitant]
     Active Substance: FLUVOXAMINE MALEATE
     Indication: DEPRESSION
     Dosage: UNK, QD
     Route: 048
  5. EVISTA [Concomitant]
     Active Substance: RALOXIFENE HYDROCHLORIDE
     Indication: BONE DISORDER
     Dosage: UNK, QD
     Route: 048
  6. VEDOLIZUMAB [Suspect]
     Active Substance: VEDOLIZUMAB
     Indication: CROHN^S DISEASE
     Dosage: 300 MG, UNK
     Route: 042
     Dates: start: 20160623

REACTIONS (6)
  - Paranasal sinus discomfort [Recovered/Resolved]
  - Weight decreased [Not Recovered/Not Resolved]
  - Therapeutic reaction time decreased [Unknown]
  - Nasopharyngitis [Recovered/Resolved]
  - Nasopharyngitis [Not Recovered/Not Resolved]
  - Head discomfort [Unknown]
